FAERS Safety Report 7771906-0 (Version None)
Quarter: 2011Q3

REPORT INFORMATION
  Report Type: 
  Country: None (occurrence: None)
  Receive Date: 20110922
  Receipt Date: 20100917
  Transmission Date: 20111222
  Serious: No
  Sender: FDA-Public Use
  Company Number: US-ASTRAZENECA-2010SE26791

PATIENT
  Age: 44 Year
  Sex: Male

DRUGS (2)
  1. EFFEXOR [Concomitant]
  2. SEROQUEL XR [Suspect]
     Indication: BIPOLAR DISORDER
     Route: 048
     Dates: start: 20020101

REACTIONS (6)
  - VOMITING [None]
  - MALAISE [None]
  - INSOMNIA [None]
  - TREMOR [None]
  - RESTLESSNESS [None]
  - DRUG DOSE OMISSION [None]
